FAERS Safety Report 6164502-2 (Version None)
Quarter: 2009Q2

REPORT INFORMATION
  Report Type: 
  Country: None (occurrence: None)
  Receive Date: 20090421
  Receipt Date: 20090414
  Transmission Date: 20091009
  Serious: No
  Sender: FDA-Public Use
  Company Number: 006149

PATIENT
  Age: 9 Month
  Sex: Male

DRUGS (4)
  1. BUSULFEX [Suspect]
     Indication: STEM CELL TRANSPLANT
     Dosage: 16.8  MG/KG
  2. FLUDARABINE PHOSPHATE [Suspect]
     Indication: STEM CELL TRANSPLANT
     Dosage: 180 MG/M2
  3. MELPHALAN (MELPHALAN) [Suspect]
     Indication: STEM CELL TRANSPLANT
     Dosage: 140 MG/M2
  4. ANTITHYMOCYTE IMMUNOGLOBULIN (ANTITHYMOCYTE IMMUNOGLOBULIN) [Suspect]
     Indication: STEM CELL TRANSPLANT
     Dosage: 30 MG/KG

REACTIONS (4)
  - BLINDNESS CORTICAL [None]
  - DISEASE PROGRESSION [None]
  - HYDROCEPHALUS [None]
  - STAPHYLOCOCCAL SEPSIS [None]
